FAERS Safety Report 10031545 (Version 1)
Quarter: 2014Q1

REPORT INFORMATION
  Report Type: Spontaneous
  Country: US (occurrence: US)
  Receive Date: 20140324
  Receipt Date: 20140324
  Transmission Date: 20141002
  Serious: No
  Sender: FDA-Public Use
  Company Number: US-B.I. PHARMACEUTICALS,INC./RIDGEFIELD-2014-BI-12275BP

PATIENT
  Age: 72 Year
  Sex: Male
  Weight: 136 kg

DRUGS (11)
  1. TRADJENTA [Suspect]
     Indication: DIABETES MELLITUS
     Dosage: 5 MG
     Route: 048
     Dates: start: 20140312, end: 20140317
  2. LANTUS [Concomitant]
     Indication: DIABETES MELLITUS
     Dosage: FORMULATION: SUBCUTANEOUS DAILY DOSE :40 UNITS EVERY MORNING AND 20 UNITS AT BEDTIME
     Route: 058
  3. HUMALOG [Concomitant]
     Indication: DIABETES MELLITUS
     Dosage: FORMULATION:SUBCUTANEOUS DAILY DOSE:16 UNITS EVERY MORNING AND 18 UNITS AT DINNER TIME.
     Route: 058
  4. CITALOPRAM [Concomitant]
     Indication: DEPRESSION
     Dosage: 40 MG
     Route: 048
  5. TORSEMIDE [Concomitant]
     Indication: RENAL DISORDER
     Dosage: 60 MG
     Route: 048
  6. CARVEDILOL [Concomitant]
     Dosage: DOSE PER APPLICATION: 6.25; DAILY DOSE: 12.5
     Route: 048
  7. VITAMIN D [Concomitant]
     Indication: SUPPLEMENTATION THERAPY
     Dosage: 1000 MG
     Route: 048
  8. CRANBERRY [Concomitant]
     Indication: URINARY TRACT INFECTION
     Dosage: 1000 MG
     Route: 048
  9. VITAMIN B 12 [Concomitant]
     Indication: SUPPLEMENTATION THERAPY
     Dosage: 1000 MG
     Route: 048
  10. SIMVASTATIN [Concomitant]
     Indication: BLOOD CHOLESTEROL INCREASED
     Dosage: 40 MG
     Route: 048
  11. MULTIVITAMIN [Concomitant]
     Indication: SUPPLEMENTATION THERAPY
     Route: 048

REACTIONS (2)
  - Lip swelling [Recovered/Resolved]
  - Vision blurred [Recovered/Resolved]
